FAERS Safety Report 9336440 (Version 1)
Quarter: 2013Q2

REPORT INFORMATION
  Report Type: Report from Study
  Country: AR (occurrence: AR)
  Receive Date: 20130607
  Receipt Date: 20130607
  Transmission Date: 20140414
  Serious: Yes (Other)
  Sender: FDA-Public Use
  Company Number: AR-ROCHE-1232642

PATIENT
  Sex: Female

DRUGS (1)
  1. LUCENTIS [Suspect]
     Indication: CATARACT
     Route: 050
     Dates: start: 2011, end: 2011

REACTIONS (2)
  - Lacrimation increased [Unknown]
  - Diabetes mellitus [Unknown]
